FAERS Safety Report 11030474 (Version 1)
Quarter: 2015Q2

REPORT INFORMATION
  Report Type: Spontaneous
  Country: US (occurrence: None)
  Receive Date: 20150414
  Receipt Date: 20150414
  Transmission Date: 20150821
  Serious: Yes (Hospitalization)
  Sender: FDA-Public Use
  Company Number: None

PATIENT
  Age: 59 Year
  Sex: Male
  Weight: 163.3 kg

DRUGS (1)
  1. WARFARIN [Suspect]
     Active Substance: WARFARIN
     Indication: ATRIAL FIBRILLATION
     Dosage: MG, PO
     Route: 048
     Dates: start: 20030211, end: 20141023

REACTIONS (2)
  - Rectal adenocarcinoma [None]
  - Haemorrhage [None]

NARRATIVE: CASE EVENT DATE: 20141016
